FAERS Safety Report 12851934 (Version 1)
Quarter: 2016Q4

REPORT INFORMATION
  Report Type: Spontaneous
  Country: US (occurrence: US)
  Receive Date: 20161014
  Receipt Date: 20161014
  Transmission Date: 20170207
  Serious: Yes (Other)
  Sender: FDA-Public Use
  Company Number: None

PATIENT
  Age: 57 Year
  Sex: Female
  Weight: 131.85 kg

DRUGS (30)
  1. ATROVASTATIN [Concomitant]
     Active Substance: ATORVASTATIN CALCIUM
  2. VENTROLIN HFA [Concomitant]
  3. BLACK COHOSH [Concomitant]
     Active Substance: BLACK COHOSH
  4. MAGNESIUM [Concomitant]
     Active Substance: MAGNESIUM
  5. CULTURELLE - PROBIOTIC [Concomitant]
  6. LEVOTHYROXINE. [Concomitant]
     Active Substance: LEVOTHYROXINE
  7. CARDVEDILOL [Concomitant]
  8. CEPHALENXIN [Concomitant]
  9. TERAZOSIN [Concomitant]
     Active Substance: TERAZOSIN\TERAZOSIN HYDROCHLORIDE
  10. CITRACAL [Concomitant]
     Active Substance: CALCIUM CITRATE
  11. IRON [Concomitant]
     Active Substance: IRON
  12. POTASSIUM [Concomitant]
     Active Substance: POTASSIUM
  13. NIFEDIPINE. [Concomitant]
     Active Substance: NIFEDIPINE
  14. SPIRONOLACTONE. [Concomitant]
     Active Substance: SPIRONOLACTONE
  15. ADVAIR HFA [Concomitant]
     Active Substance: FLUTICASONE PROPIONATE\SALMETEROL XINAFOATE
  16. VITAMIN D3 [Concomitant]
     Active Substance: CHOLECALCIFEROL
  17. LYRICA [Concomitant]
     Active Substance: PREGABALIN
  18. TRULICITY [Concomitant]
     Active Substance: DULAGLUTIDE
  19. PANTOPRAZZOLE [Concomitant]
  20. BENICAR [Concomitant]
     Active Substance: OLMESARTAN MEDOXOMIL
  21. CALCITROL [Concomitant]
     Active Substance: CALCITRIOL
  22. AMOXILICILLIN [Concomitant]
  23. UREA CREAM [Concomitant]
  24. DISKUS [Concomitant]
  25. LEVOTHYROXINE. [Concomitant]
     Active Substance: LEVOTHYROXINE
  26. MONTELKAST [Concomitant]
  27. COLCRYS [Concomitant]
     Active Substance: COLCHICINE
  28. FOLTANAX [Concomitant]
  29. FLUIICASONE PROP [Concomitant]
  30. BYDUREON [Suspect]
     Active Substance: EXENATIDE
     Indication: DIABETES MELLITUS
     Dosage: ?          OTHER FREQUENCY:WEEKLY;?
     Route: 058
     Dates: start: 20160729, end: 20161007

REACTIONS (3)
  - Mass [None]
  - Injection site induration [None]
  - Injection site inflammation [None]

NARRATIVE: CASE EVENT DATE: 20161007
